FAERS Safety Report 12281688 (Version 2)
Quarter: 2016Q2

REPORT INFORMATION
  Report Type: Report from Study
  Country: PH (occurrence: PH)
  Receive Date: 20160419
  Receipt Date: 20160420
  Transmission Date: 20160815
  Serious: Yes (Death, Other)
  Sender: FDA-Public Use
  Company Number: PH-GLAXOSMITHKLINE-PH2015156871

PATIENT
  Age: 29 Year
  Sex: Female
  Weight: 61.5 kg

DRUGS (1)
  1. PLACEBO [Suspect]
     Active Substance: UNSPECIFIED INGREDIENT
     Indication: LUPUS NEPHRITIS
     Dosage: UNK, CYC
     Route: 042
     Dates: start: 20150812

REACTIONS (1)
  - Death [Fatal]

NARRATIVE: CASE EVENT DATE: 20151101
